FAERS Safety Report 15439763 (Version 4)
Quarter: 2019Q2

REPORT INFORMATION
  Report Type: Report from Study
  Country: None (occurrence: US)
  Receive Date: 20180928
  Receipt Date: 20190415
  Transmission Date: 20190711
  Serious: Yes (Hospitalization, Other)
  Sender: FDA-Public Use
  Company Number: US-ABBVIE-18K-163-2444905-00

PATIENT
  Age: 67 Year
  Sex: Male
  Weight: 99.88 kg

DRUGS (4)
  1. HUMIRA [Suspect]
     Active Substance: ADALIMUMAB
     Indication: PSORIASIS
     Route: 058
     Dates: start: 20180426, end: 20180426
  2. HUMIRA [Suspect]
     Active Substance: ADALIMUMAB
     Indication: PSORIASIS
     Route: 058
     Dates: start: 20180419, end: 20180419
  3. HUMIRA [Suspect]
     Active Substance: ADALIMUMAB
     Route: 058
     Dates: start: 2018, end: 20180723
  4. HUMIRA [Suspect]
     Active Substance: ADALIMUMAB
     Route: 058
     Dates: start: 20181004

REACTIONS (9)
  - Labyrinthitis [Recovered/Resolved]
  - Psoriasis [Recovering/Resolving]
  - Thrombosis [Recovering/Resolving]
  - Coronary artery occlusion [Recovering/Resolving]
  - Infection [Recovered/Resolved]
  - Drug ineffective [Unknown]
  - Pulmonary thrombosis [Recovering/Resolving]
  - Post procedural pulmonary embolism [Unknown]
  - White blood cell count increased [Unknown]

NARRATIVE: CASE EVENT DATE: 2018
